FAERS Safety Report 5368857-8 (Version None)
Quarter: 2007Q2

REPORT INFORMATION
  Report Type: 
  Country: None (occurrence: None)
  Receive Date: 20070625
  Receipt Date: 20061101
  Transmission Date: 20071010
  Serious: No
  Sender: FDA-Public Use
  Company Number: US-ASTRAZENECA-2006UW21096

PATIENT
  Age: 71 Year
  Sex: Female
  Weight: 59 kg

DRUGS (8)
  1. CRESTOR [Suspect]
     Indication: BLOOD CHOLESTEROL INCREASED
     Route: 048
  2. CRESTOR [Suspect]
     Route: 048
     Dates: start: 20061001
  3. THYROID REPLACEMENT [Concomitant]
  4. ACTONEL [Concomitant]
  5. TOPROL-XL [Concomitant]
     Route: 048
  6. TANBOCOR [Concomitant]
  7. ESTRADIOL [Concomitant]
  8. IMURAN [Concomitant]

REACTIONS (5)
  - ALOPECIA [None]
  - BACK PAIN [None]
  - HIGH DENSITY LIPOPROTEIN DECREASED [None]
  - LOW DENSITY LIPOPROTEIN INCREASED [None]
  - MALAISE [None]
